FAERS Safety Report 15996502 (Version 1)
Quarter: 2019Q1

REPORT INFORMATION
  Report Type: Spontaneous
  Country: DE (occurrence: DE)
  Receive Date: 20190222
  Receipt Date: 20190222
  Transmission Date: 20190418
  Serious: Yes (Other)
  Sender: FDA-Public Use
  Company Number: PHHY2019DE040514

PATIENT
  Age: 28 Year
  Sex: Female

DRUGS (1)
  1. INTERFERON BETA-1B [Suspect]
     Active Substance: INTERFERON BETA-1B
     Indication: MULTIPLE SCLEROSIS
     Dosage: 250 UG, QOD
     Route: 058
     Dates: start: 20150517, end: 20190201

REACTIONS (2)
  - Multiple sclerosis [Recovered/Resolved]
  - Optic neuritis [Recovering/Resolving]

NARRATIVE: CASE EVENT DATE: 20190124
